FAERS Safety Report 6211135-5 (Version None)
Quarter: 2009Q2

REPORT INFORMATION
  Report Type: 
  Country: None (occurrence: None)
  Receive Date: 20090528
  Receipt Date: 20090129
  Transmission Date: 20091009
  Serious: No
  Sender: FDA-Public Use
  Company Number: 2009S1001912

PATIENT
  Age: 54 Year
  Sex: Female
  Weight: 52.1637 kg

DRUGS (2)
  1. METHIMAZOLE [Suspect]
     Indication: BASEDOW'S DISEASE
     Dosage: 10 MG; DAILY; ORAL
     Route: 048
     Dates: start: 20090101, end: 20090117
  2. KLONOPIN [Concomitant]

REACTIONS (7)
  - ARTHRALGIA [None]
  - DRUG HYPERSENSITIVITY [None]
  - LUPUS-LIKE SYNDROME [None]
  - MEMORY IMPAIRMENT [None]
  - MUSCULOSKELETAL PAIN [None]
  - MYALGIA [None]
  - PAIN IN EXTREMITY [None]
